FAERS Safety Report 13542041 (Version 5)
Quarter: 2017Q3

REPORT INFORMATION
  Report Type: Spontaneous
  Country: US (occurrence: US)
  Receive Date: 20170512
  Receipt Date: 20170822
  Transmission Date: 20171127
  Serious: Yes (Hospitalization, Other)
  Sender: FDA-Public Use
  Company Number: US-ACTELION-A-US2017-153696

PATIENT
  Age: 64 Year
  Sex: Female
  Weight: 50.79 kg

DRUGS (5)
  1. TRACLEER [Suspect]
     Active Substance: BOSENTAN
     Indication: PULMONARY HYPERTENSION
     Dosage: 125 MG, BID
     Route: 048
  2. ADCIRCA [Concomitant]
     Active Substance: TADALAFIL
  3. NIFEDIPINE. [Concomitant]
     Active Substance: NIFEDIPINE
  4. REMODULIN [Suspect]
     Active Substance: TREPROSTINIL
     Indication: PRODUCT USED FOR UNKNOWN INDICATION
     Route: 065
  5. COUMADIN [Concomitant]
     Active Substance: WARFARIN SODIUM

REACTIONS (13)
  - Body temperature [Unknown]
  - Device related infection [Unknown]
  - Staphylococcal infection [Unknown]
  - Liver function test increased [Unknown]
  - Fatigue [Unknown]
  - Blood culture positive [Unknown]
  - Chills [Unknown]
  - Asthenia [Unknown]
  - Infection [Unknown]
  - Catheter management [Unknown]
  - Dizziness [Unknown]
  - Complication associated with device [Unknown]
  - Malaise [Unknown]
